FAERS Safety Report 20507150 (Version 1)
Quarter: 2022Q1

REPORT INFORMATION
  Report Type: Spontaneous
  Country: US (occurrence: US)
  Receive Date: 20220223
  Receipt Date: 20220223
  Transmission Date: 20220424
  Serious: No
  Sender: FDA-Public Use
  Company Number: US-PERRIGO-21US031213

PATIENT
  Age: 84 Year
  Sex: Female
  Weight: 67.347 kg

DRUGS (2)
  1. DICLOFENAC SODIUM [Suspect]
     Active Substance: DICLOFENAC SODIUM
     Indication: Off label use
     Dosage: SMALL AMOUNT, 3-4 TIMES QD
     Route: 061
     Dates: start: 20211110
  2. DICLOFENAC SODIUM [Suspect]
     Active Substance: DICLOFENAC SODIUM
     Dosage: SMALL AMOUNT, SINGLE
     Route: 048
     Dates: start: 20211116, end: 20211116

REACTIONS (4)
  - Product after taste [Recovered/Resolved]
  - Drug effective for unapproved indication [Unknown]
  - Accidental exposure to product [Recovered/Resolved]
  - Wrong technique in product usage process [Not Recovered/Not Resolved]

NARRATIVE: CASE EVENT DATE: 20211110
